FAERS Safety Report 11631977 (Version 1)
Quarter: 2015Q4

REPORT INFORMATION
  Report Type: Spontaneous
  Country: SK (occurrence: SK)
  Receive Date: 20151015
  Receipt Date: 20151015
  Transmission Date: 20160304
  Serious: Yes (Hospitalization)
  Sender: FDA-Public Use
  Company Number: SK-ACCORD-034415

PATIENT
  Age: 3 Year
  Sex: Male

DRUGS (6)
  1. METHOTREXATE [Suspect]
     Active Substance: METHOTREXATE
     Indication: BRAIN NEOPLASM
     Dosage: RECEIVED HIGH DOSE OF METHOTREXATE
     Dates: start: 201403, end: 201405
  2. ETOPOSIDE. [Suspect]
     Active Substance: ETOPOSIDE
     Indication: BRAIN NEOPLASM
     Dates: start: 201403, end: 201405
  3. TEMOZOLOMIDE. [Concomitant]
     Active Substance: TEMOZOLOMIDE
  4. CYCLOPHOSPHAMIDE/CYCLOPHOSPHAMIDE MONOHYDRATE [Suspect]
     Active Substance: CYCLOPHOSPHAMIDE
     Indication: BRAIN NEOPLASM
     Dates: start: 201403, end: 201405
  5. VINCRISTINE [Suspect]
     Active Substance: VINCRISTINE
     Indication: BRAIN NEOPLASM
     Dates: start: 201403, end: 201405
  6. CISPLATIN. [Suspect]
     Active Substance: CISPLATIN
     Indication: BRAIN NEOPLASM
     Dates: start: 201403, end: 201405

REACTIONS (13)
  - Somnolence [Unknown]
  - Balance disorder [Unknown]
  - Dyspnoea [Unknown]
  - Speech disorder [Unknown]
  - Nausea [Unknown]
  - Sleep disorder [Unknown]
  - Dizziness [Unknown]
  - Pyrexia [Unknown]
  - Vomiting [Unknown]
  - Gait disturbance [Unknown]
  - Seizure [Unknown]
  - Altered state of consciousness [Unknown]
  - Dysphagia [Unknown]
